FAERS Safety Report 4503908-1 (Version None)
Quarter: 2004Q4

REPORT INFORMATION
  Report Type: 
  Country: None (occurrence: None)
  Receive Date: 20041115
  Receipt Date: 20041102
  Transmission Date: 20050328
  Serious: Yes (Hospitalization)
  Sender: FDA-Public Use
  Company Number: 2004089116

PATIENT
  Age: 62 Year
  Sex: Male

DRUGS (1)
  1. LIPITOR [Suspect]
     Indication: ILL-DEFINED DISORDER
     Dates: end: 20041102

REACTIONS (4)
  - BACK PAIN [None]
  - MUSCLE ATROPHY [None]
  - NECK PAIN [None]
  - PAIN IN EXTREMITY [None]
